FAERS Safety Report 9359992 (Version 1)
Quarter: 2013Q2

REPORT INFORMATION
  Report Type: Spontaneous
  Country: US (occurrence: US)
  Receive Date: 20130621
  Receipt Date: 20130621
  Transmission Date: 20140414
  Serious: Yes (Other)
  Sender: FDA-Public Use
  Company Number: PR-ASTRAZENECA-2013SE46547

PATIENT
  Age: 81 Year
  Sex: Female
  Weight: 61.7 kg

DRUGS (7)
  1. ATACAND [Suspect]
     Indication: HYPERTENSION
     Route: 048
  2. CRESTOR [Suspect]
     Indication: BLOOD CHOLESTEROL INCREASED
     Route: 048
     Dates: start: 201303
  3. CLOPIDOGREL [Concomitant]
     Indication: BLOOD DISORDER
     Route: 048
  4. CLOPIDOGREL [Concomitant]
     Indication: HEADACHE
     Route: 048
  5. MECLIZINE [Concomitant]
     Indication: BALANCE DISORDER
  6. FLUVOXAMINE [Concomitant]
     Indication: ANXIETY
     Route: 048
  7. UNSPECIFIED CHOLESTROL MEDICATION [Concomitant]
     Indication: BLOOD CHOLESTEROL INCREASED
     Dates: end: 201303

REACTIONS (9)
  - Loss of consciousness [Not Recovered/Not Resolved]
  - Fall [Not Recovered/Not Resolved]
  - Anxiety [Not Recovered/Not Resolved]
  - Vomiting [Not Recovered/Not Resolved]
  - Vertigo labyrinthine [Not Recovered/Not Resolved]
  - Blood cholesterol increased [Recovering/Resolving]
  - Middle insomnia [Not Recovered/Not Resolved]
  - Amnesia [Not Recovered/Not Resolved]
  - Dizziness [Not Recovered/Not Resolved]
